FAERS Safety Report 7574800-3 (Version None)
Quarter: 2011Q2

REPORT INFORMATION
  Report Type: 
  Country: None (occurrence: None)
  Receive Date: 20110627
  Receipt Date: 20110127
  Transmission Date: 20111010
  Serious: Yes (Hospitalization, Other)
  Sender: FDA-Public Use
  Company Number: US-BAYER-201038487NA

PATIENT
  Age: 29 Year
  Sex: Female
  Weight: 55 kg

DRUGS (7)
  1. YASMIN [Suspect]
     Indication: CONTRACEPTION
     Dosage: UNK
     Route: 048
     Dates: start: 20050101, end: 20100101
  2. ALBUTEROL SULFATE AUTOHALER [Concomitant]
  3. AZITHROMYCIN [Concomitant]
     Dosage: UNK
     Dates: start: 20070305, end: 20080916
  4. DROSPIRENONE AND ETHINYL ESTRADIOL [Suspect]
     Indication: CONTRACEPTION
     Dosage: UNK
     Route: 048
     Dates: start: 20050101, end: 20100101
  5. PREDNISONE [Concomitant]
     Dosage: UNK
     Dates: start: 20070806
  6. BENZONATATE [Concomitant]
     Dosage: UNK
     Dates: start: 20070806
  7. ACIPHEX [Concomitant]

REACTIONS (7)
  - PAIN [None]
  - ABDOMINAL PAIN UPPER [None]
  - INJURY [None]
  - SCAR [None]
  - CHOLELITHIASIS [None]
  - EMOTIONAL DISTRESS [None]
  - CHOLECYSTITIS CHRONIC [None]
